FAERS Safety Report 16154118 (Version 1)
Quarter: 2019Q2

REPORT INFORMATION
  Report Type: Spontaneous
  Country: US (occurrence: US)
  Receive Date: 20190403
  Receipt Date: 20190403
  Transmission Date: 20190711
  Serious: Yes (Other)
  Sender: FDA-Public Use
  Company Number: US-SA-2019SA089878

PATIENT
  Age: 72 Year
  Sex: Female

DRUGS (3)
  1. NORVASC [Concomitant]
     Active Substance: AMLODIPINE BESYLATE
  2. PRALUENT [Suspect]
     Active Substance: ALIROCUMAB
     Dosage: UNK
     Dates: start: 20190207
  3. VALSARTAN. [Concomitant]
     Active Substance: VALSARTAN

REACTIONS (4)
  - Feeling abnormal [Unknown]
  - Dementia [Unknown]
  - Memory impairment [Unknown]
  - Cognitive disorder [Unknown]
